FAERS Safety Report 19442924 (Version 1)
Quarter: 2021Q2

REPORT INFORMATION
  Report Type: Report from Study
  Country: US (occurrence: US)
  Receive Date: 20210621
  Receipt Date: 20210621
  Transmission Date: 20210717
  Serious: No
  Sender: FDA-Public Use
  Company Number: NVSC2021US133463

PATIENT
  Sex: Male

DRUGS (1)
  1. ILARIS [Suspect]
     Active Substance: CANAKINUMAB
     Indication: PYREXIA
     Dosage: 90 MG, QMO
     Route: 058

REACTIONS (4)
  - Pallor [Unknown]
  - Abdominal pain [Unknown]
  - Nausea [Unknown]
  - Illness [Unknown]
